FAERS Safety Report 15010177 (Version 2)
Quarter: 2018Q2

REPORT INFORMATION
  Report Type: Spontaneous
  Country: IR (occurrence: IR)
  Receive Date: 20180614
  Receipt Date: 20180621
  Transmission Date: 20180711
  Serious: Yes (Death, Hospitalization)
  Sender: FDA-Public Use
  Company Number: IR-VIVIMED-2018SP004760

PATIENT

DRUGS (1)
  1. AMLODIPINE [Suspect]
     Active Substance: AMLODIPINE BESYLATE
     Indication: PRODUCT USED FOR UNKNOWN INDICATION
     Dosage: 450 MG, UNK (90 TABLETS)
     Route: 048

REACTIONS (16)
  - Abdominal discomfort [Unknown]
  - Hypotension [Unknown]
  - Metabolic acidosis [Unknown]
  - Nausea [Unknown]
  - Respiratory alkalosis [Unknown]
  - Rhabdomyolysis [Unknown]
  - Tachycardia [Unknown]
  - Toxicity to various agents [Fatal]
  - Disorientation [Unknown]
  - Anuria [Unknown]
  - Intentional overdose [Fatal]
  - Multiple organ dysfunction syndrome [Fatal]
  - Renal failure [Unknown]
  - Pulmonary oedema [Recovered/Resolved]
  - Shock [Unknown]
  - Hepatic failure [Unknown]
